FAERS Safety Report 9792827 (Version 4)
Quarter: 2014Q4

REPORT INFORMATION
  Report Type: Report from Study
  Country: US (occurrence: US)
  Receive Date: 20140102
  Receipt Date: 20141015
  Transmission Date: 20150529
  Serious: Yes (Hospitalization, Other)
  Sender: FDA-Public Use
  Company Number: US-SANOFI-AVENTIS-2013SA041618

PATIENT
  Sex: Female

DRUGS (1)
  1. AUBAGIO [Suspect]
     Active Substance: TERIFLUNOMIDE
     Indication: MULTIPLE SCLEROSIS
     Dosage: TAKEN FROM -AROUND THE END OF MAR 2013 TO BEGINNING APR 2013
     Route: 048
     Dates: start: 20130302, end: 20140917

REACTIONS (16)
  - Visual impairment [Unknown]
  - Nasopharyngitis [Unknown]
  - Pruritus [Unknown]
  - Swelling [Unknown]
  - Feeling abnormal [Not Recovered/Not Resolved]
  - Productive cough [Unknown]
  - Bronchitis [Not Recovered/Not Resolved]
  - Gait disturbance [Not Recovered/Not Resolved]
  - Alopecia [Unknown]
  - Cardiac disorder [Unknown]
  - Cough [Unknown]
  - Rash erythematous [Not Recovered/Not Resolved]
  - Drug dose omission [Unknown]
  - Abasia [Unknown]
  - Burning sensation [Recovered/Resolved]
  - Gait disturbance [Unknown]

NARRATIVE: CASE EVENT DATE: 2014
